FAERS Safety Report 9289587 (Version 2)
Quarter: 2013Q2

REPORT INFORMATION
  Report Type: Spontaneous
  Country: RU (occurrence: RU)
  Receive Date: 20130515
  Receipt Date: 20130517
  Transmission Date: 20140414
  Serious: Yes (Hospitalization, Other)
  Sender: FDA-Public Use
  Company Number: RU-ROCHE-1224242

PATIENT
  Age: 53 Year
  Sex: Male

DRUGS (11)
  1. MABTHERA [Suspect]
     Indication: RHEUMATOID ARTHRITIS
     Route: 065
     Dates: start: 20101124
  2. MABTHERA [Suspect]
     Route: 065
     Dates: start: 20110616, end: 20110630
  3. MABTHERA [Suspect]
     Route: 065
     Dates: start: 20130325
  4. MABTHERA [Suspect]
     Route: 065
     Dates: start: 20130410, end: 20130426
  5. MABTHERA [Suspect]
     Route: 065
     Dates: start: 20130510
  6. TOCILIZUMAB [Suspect]
     Indication: ARTHRITIS
     Route: 065
     Dates: start: 20111221, end: 20121224
  7. METHYLPREDNISOLONE [Concomitant]
     Indication: RHEUMATOID ARTHRITIS
     Route: 065
  8. PENTOXIFILLIN [Concomitant]
     Route: 041
  9. NICOTINIC ACID [Concomitant]
     Route: 030
  10. DICLOFENAC [Concomitant]
     Route: 030
  11. CARDIOMAGNYL [Concomitant]
     Route: 065

REACTIONS (3)
  - Peripheral artery thrombosis [Recovered/Resolved]
  - Peripheral ischaemia [Recovered/Resolved]
  - Sympathectomy [Unknown]
